FAERS Safety Report 6969560-0 (Version None)
Quarter: 2010Q3

REPORT INFORMATION
  Report Type: 
  Country: None (occurrence: None)
  Receive Date: 20100907
  Receipt Date: 20100907
  Transmission Date: 20110219
  Serious: Yes (Other)
  Sender: FDA-Public Use
  Company Number: None

PATIENT
  Age: 53 Year
  Weight: 111.1313 kg

DRUGS (1)
  1. CEFUROXIME [Suspect]
     Indication: LUNG INFECTION
     Dosage: 1- 250 MG TABLET TWICE DAILY PO
     Route: 048
     Dates: start: 20100826, end: 20100904

REACTIONS (5)
  - ACNE [None]
  - FURUNCLE [None]
  - NASAL OEDEMA [None]
  - RASH [None]
  - RHINALGIA [None]
